FAERS Safety Report 7150950-0 (Version None)
Quarter: 2010Q4

REPORT INFORMATION
  Report Type: 
  Country: None (occurrence: None)
  Receive Date: 20101210
  Receipt Date: 20101201
  Transmission Date: 20110411
  Serious: Yes (Death)
  Sender: FDA-Public Use
  Company Number: A0832349A

PATIENT
  Age: 70 Year
  Sex: Female
  Weight: 67.3 kg

DRUGS (1)
  1. AVANDIA [Suspect]
     Route: 048
     Dates: start: 20000427, end: 20040716

REACTIONS (2)
  - MYOCARDIAL INFARCTION [None]
  - VENTRICULAR FIBRILLATION [None]
